FAERS Safety Report 12270434 (Version 1)
Quarter: 2016Q2

REPORT INFORMATION
  Report Type: Spontaneous
  Country: US (occurrence: None)
  Receive Date: 20160414
  Receipt Date: 20160414
  Transmission Date: 20160815
  Serious: Yes (Other)
  Sender: FDA-Public Use
  Company Number: None

PATIENT
  Age: 43 Year
  Sex: Male
  Weight: 70.31 kg

DRUGS (8)
  1. FINASTERIDE. [Suspect]
     Active Substance: FINASTERIDE
     Indication: ALOPECIA
     Dosage: IN THE MORNING TAKEN BY MOUTH
     Route: 048
     Dates: start: 20000430, end: 20160408
  2. LISINOPRIL. [Concomitant]
     Active Substance: LISINOPRIL
  3. VITAMIN D3 [Concomitant]
     Active Substance: CHOLECALCIFEROL
  4. MULTIVITAMIN [Concomitant]
     Active Substance: VITAMINS
  5. POTASSIUM GLUCONATE [Concomitant]
     Active Substance: POTASSIUM GLUCONATE
  6. ASPIRIN. [Concomitant]
     Active Substance: ASPIRIN
  7. AVORVASTATIN [Concomitant]
  8. MAGNESIUM [Concomitant]
     Active Substance: MAGNESIUM

REACTIONS (6)
  - Feeling abnormal [None]
  - Loss of libido [None]
  - Muscle spasms [None]
  - Ejaculation failure [None]
  - Erectile dysfunction [None]
  - Insomnia [None]

NARRATIVE: CASE EVENT DATE: 20000430
